FAERS Safety Report 16443882 (Version 3)
Quarter: 2023Q4

REPORT INFORMATION
  Report Type: Spontaneous
  Country: CA (occurrence: CA)
  Receive Date: 20190618
  Receipt Date: 20231208
  Transmission Date: 20240110
  Serious: Yes (Other)
  Sender: FDA-Public Use
  Company Number: CA-AUROBINDO-AUR-APL-2019-033449

PATIENT
  Age: 15 Year
  Sex: Female

DRUGS (10)
  1. ATORVASTATIN [Interacting]
     Active Substance: ATORVASTATIN
     Indication: Product used for unknown indication
     Dosage: UNK
     Route: 048
  2. VORICONAZOLE [Interacting]
     Active Substance: VORICONAZOLE
     Indication: Fungal infection
     Dosage: UNK
     Route: 048
  3. VORICONAZOLE [Interacting]
     Active Substance: VORICONAZOLE
     Dosage: UNK
     Route: 048
  4. AZITHROMYCIN [Interacting]
     Active Substance: AZITHROMYCIN
     Indication: Product used for unknown indication
     Dosage: UNK
     Route: 048
  5. PANTOPRAZOLE [Interacting]
     Active Substance: PANTOPRAZOLE
     Indication: Product used for unknown indication
     Dosage: UNK
     Route: 048
  6. LANSOPRAZOLE [Interacting]
     Active Substance: LANSOPRAZOLE
     Indication: Product used for unknown indication
     Dosage: UNK
     Route: 048
  7. MYCOPHENOLATE MOFETIL [Interacting]
     Active Substance: MYCOPHENOLATE MOFETIL
     Indication: Prophylaxis against transplant rejection
     Dosage: UNK
     Route: 048
  8. PREDNISONE [Interacting]
     Active Substance: PREDNISONE
     Indication: Product used for unknown indication
     Dosage: UNK
     Route: 048
  9. SULFATRIM [Interacting]
     Active Substance: SULFAMETHOXAZOLE\TRIMETHOPRIM
     Indication: Product used for unknown indication
     Dosage: UNK
     Route: 048
  10. TACROLIMUS [Interacting]
     Active Substance: TACROLIMUS
     Indication: Prophylaxis against transplant rejection
     Dosage: UNK
     Route: 048

REACTIONS (6)
  - Squamous cell carcinoma of skin [Unknown]
  - Actinic keratosis [Unknown]
  - Photodermatosis [Unknown]
  - Photosensitivity reaction [Unknown]
  - Solar lentigo [Unknown]
  - Drug interaction [Unknown]
